FAERS Safety Report 8282274-2 (Version None)
Quarter: 2012Q2

REPORT INFORMATION
  Report Type: 
  Country: None (occurrence: None)
  Receive Date: 20120413
  Receipt Date: 20120405
  Transmission Date: 20120825
  Serious: Yes (Other)
  Sender: FDA-Public Use
  Company Number: BR-ABBOTT-12P-020-0924947-00

PATIENT
  Sex: Female
  Weight: 68 kg

DRUGS (11)
  1. ENBREL [Suspect]
     Indication: ARTHRITIS
     Dosage: WEEKLY, ON FRIDAYS
     Route: 058
     Dates: start: 20120301
  2. IBUPROFEN [Concomitant]
     Indication: ARTHRITIS
     Dosage: 2 TIMES/DAY, AT 7 AM AND 7 PM
     Dates: start: 20111001
  3. NIMESULIDE [Concomitant]
     Indication: PAIN
  4. LEFLUNOMIDE [Concomitant]
     Indication: ARTHRITIS
     Dosage: DAILY AT 7PM
     Dates: start: 20090101
  5. HUMIRA [Suspect]
     Indication: RHEUMATOID ARTHRITIS
     Route: 058
     Dates: start: 20100701, end: 20120301
  6. DEFLAZACORT [Concomitant]
     Indication: PAIN
     Dates: start: 20111001
  7. IBUPROFEN [Concomitant]
     Indication: PAIN
  8. ATENOLOL [Concomitant]
     Indication: HYPERTENSION
     Dosage: DAILY, 50 MG/12.5 MG
     Dates: start: 20070101
  9. PREDNISONE [Concomitant]
     Indication: ARTHRITIS
     Dates: start: 20070101
  10. PREDNISONE [Concomitant]
     Indication: PAIN
  11. NIMESULIDE [Concomitant]
     Indication: ARTHRITIS
     Dates: start: 20110101

REACTIONS (3)
  - OSTEOARTHRITIS [None]
  - WEIGHT INCREASED [None]
  - ARTHRITIS [None]
